FAERS Safety Report 14844786 (Version 3)
Quarter: 2018Q3

REPORT INFORMATION
  Report Type: Spontaneous
  Country: US (occurrence: US)
  Receive Date: 20180504
  Receipt Date: 20180816
  Transmission Date: 20181010
  Serious: Yes (Other)
  Sender: FDA-Public Use
  Company Number: US-009507513-1804USA007989

PATIENT
  Age: 37 Year
  Sex: Female
  Weight: 139.68 kg

DRUGS (4)
  1. IXEKIZUMAB [Concomitant]
     Active Substance: IXEKIZUMAB
     Indication: PSORIASIS
  2. METOPROLOL. [Concomitant]
     Active Substance: METOPROLOL
     Route: 048
  3. NEXPLANON [Suspect]
     Active Substance: ETONOGESTREL
     Dosage: UNK
     Route: 059
     Dates: start: 20140917, end: 20171030
  4. NEXPLANON [Suspect]
     Active Substance: ETONOGESTREL
     Dosage: 1 IMPLANT, UNK
     Route: 059
     Dates: start: 20171030, end: 2018

REACTIONS (7)
  - Device expulsion [Recovered/Resolved]
  - Device dislocation [Recovered/Resolved]
  - Drug dose omission [Unknown]
  - Incorrect drug administration duration [Unknown]
  - Complication associated with device [Recovered/Resolved]
  - Endocervical curettage [Unknown]
  - Loop electrosurgical excision procedure [Unknown]

NARRATIVE: CASE EVENT DATE: 20170918
